FAERS Safety Report 18356186 (Version 1)
Quarter: 2020Q4

REPORT INFORMATION
  Report Type: Spontaneous
  Country: FR (occurrence: FR)
  Receive Date: 20201007
  Receipt Date: 20201007
  Transmission Date: 20210114
  Serious: Yes (Hospitalization)
  Sender: FDA-Public Use
  Company Number: FR-JNJFOC-20200946233

PATIENT
  Age: 93 Year
  Sex: Female

DRUGS (15)
  1. CACIT VITAMINE D3 [Concomitant]
     Active Substance: CALCIUM CARBONATE\CHOLECALCIFEROL
     Route: 048
  2. CORDARONE [Concomitant]
     Active Substance: AMIODARONE HYDROCHLORIDE
     Dosage: 5 JOURS SUR 7
     Route: 048
  3. BRICANYL [Concomitant]
     Active Substance: TERBUTALINE SULFATE
     Route: 055
  4. ATROVENT [Concomitant]
     Active Substance: IPRATROPIUM BROMIDE
     Route: 055
  5. RISPERDAL [Suspect]
     Active Substance: RISPERIDONE
     Indication: DELUSION
     Route: 048
     Dates: start: 20200514
  6. PARACETAMOL BIOGARAN [Concomitant]
     Active Substance: ACETAMINOPHEN
     Route: 048
  7. PAROXETINE. [Concomitant]
     Active Substance: PAROXETINE
     Route: 048
  8. FOSINOPRIL BIOGARAN [Concomitant]
     Active Substance: FOSINOPRIL
     Route: 048
  9. FUROSEMIDE ARROW [Concomitant]
     Active Substance: FUROSEMIDE
     Route: 048
  10. LANSOYL [Concomitant]
     Active Substance: MINERAL OIL
     Route: 048
  11. SYMBICORT [Concomitant]
     Active Substance: BUDESONIDE\FORMOTEROL FUMARATE DIHYDRATE
     Route: 055
  12. PREVISCAN                          /00789001/ [Concomitant]
     Active Substance: FLUINDIONE
     Route: 048
  13. HALDOL [Suspect]
     Active Substance: HALOPERIDOL
     Indication: DELUSION
     Route: 048
     Dates: start: 20200505, end: 20200514
  14. SPAGULAX [Concomitant]
     Active Substance: PLANTAGO OVATA SEED
     Route: 048
  15. MACROGOL BIOGARAN [Concomitant]
     Active Substance: POLYETHYLENE GLYCOLS
     Route: 048

REACTIONS (2)
  - Walking disability [Recovering/Resolving]
  - General physical health deterioration [Recovering/Resolving]

NARRATIVE: CASE EVENT DATE: 20200515
